FAERS Safety Report 19451147 (Version 1)
Quarter: 2021Q2

REPORT INFORMATION
  Report Type: Spontaneous
  Country: US (occurrence: US)
  Receive Date: 20210622
  Receipt Date: 20210622
  Transmission Date: 20210717
  Serious: Yes (Hospitalization)
  Sender: FDA-Public Use
  Company Number: None

PATIENT
  Sex: Female

DRUGS (16)
  1. AMLODIPINE [Concomitant]
     Active Substance: AMLODIPINE BESYLATE
  2. DOXYCYCL HYC [Concomitant]
     Active Substance: DOXYCYCLINE HYCLATE
  3. FEXOFENADINE [Concomitant]
     Active Substance: FEXOFENADINE HYDROCHLORIDE
  4. POT CHLORIDE [Concomitant]
     Active Substance: POTASSIUM CHLORIDE
  5. LEVOFLAXACIN [Concomitant]
     Active Substance: LEVOFLOXACIN
  6. NUCALA [Suspect]
     Active Substance: MEPOLIZUMAB
     Indication: ASTHMA
     Dosage: ?          OTHER FREQUENCY:ONCE MONTHLY;?
     Route: 058
     Dates: start: 20201001
  7. DIAZEPAM. [Concomitant]
     Active Substance: DIAZEPAM
  8. NYSTATIN. [Concomitant]
     Active Substance: NYSTATIN
  9. ASELASTINE [Concomitant]
  10. FUROSEMIDE. [Concomitant]
     Active Substance: FUROSEMIDE
  11. GABAPENTIN. [Concomitant]
     Active Substance: GABAPENTIN
  12. LANSOPRAZOLE. [Concomitant]
     Active Substance: LANSOPRAZOLE
  13. LOSARTAN POT [Concomitant]
     Active Substance: LOSARTAN POTASSIUM
  14. CLOPIDOGREL [Concomitant]
     Active Substance: CLOPIDOGREL BISULFATE
  15. ATORVASTATIN [Concomitant]
     Active Substance: ATORVASTATIN
  16. CHLORTHALID [Concomitant]
     Active Substance: CHLORTHALIDONE

REACTIONS (3)
  - Asthma [None]
  - Breast operation [None]
  - Road traffic accident [None]
